FAERS Safety Report 8181202-8 (Version None)
Quarter: 2012Q1

REPORT INFORMATION
  Report Type: 
  Country: None (occurrence: None)
  Receive Date: 20120302
  Receipt Date: 20120221
  Transmission Date: 20120608
  Serious: Yes (Hospitalization)
  Sender: FDA-Public Use
  Company Number: FR-GLAXOSMITHKLINE-B0782927A

PATIENT
  Sex: Female

DRUGS (8)
  1. PREDNISONE TAB [Concomitant]
     Dosage: 5MG PER DAY
  2. ARIXTRA [Suspect]
     Indication: PRODUCT USED FOR UNKNOWN INDICATION
     Dosage: 2.5MG UNKNOWN
     Route: 058
     Dates: start: 20111001
  3. ACETAMINOPHEN AND TRAMADOL HCL [Concomitant]
     Route: 048
  4. FOSAVANCE [Concomitant]
     Route: 048
  5. NEXIUM [Concomitant]
     Dosage: 20MG PER DAY
     Route: 048
  6. POTASSIUM CHLORIDE [Concomitant]
     Dosage: 600MG TWICE PER DAY
     Route: 048
  7. IMOVANE [Concomitant]
     Dosage: 3.75MG AS REQUIRED
     Route: 048
  8. LASILIX FAIBLE 20 [Concomitant]
     Dosage: 20MG PER DAY
     Route: 048

REACTIONS (4)
  - COMMUNICATION DISORDER [None]
  - HYPERTENSION [None]
  - CEREBRAL HAEMATOMA [None]
  - VOMITING [None]
